FAERS Safety Report 18764231 (Version 1)
Quarter: 2021Q1

REPORT INFORMATION
  Report Type: Spontaneous
  Country: JP (occurrence: JP)
  Receive Date: 20210120
  Receipt Date: 20210120
  Transmission Date: 20210419
  Serious: Yes (Other)
  Sender: FDA-Public Use
  Company Number: JP-STRIDES ARCOLAB LIMITED-2021SP000882

PATIENT
  Age: 37 Year
  Sex: Female

DRUGS (1)
  1. PREDNISOLONE. [Suspect]
     Active Substance: PREDNISOLONE
     Indication: SYSTEMIC LUPUS ERYTHEMATOSUS
     Dosage: UNK,5?15MG
     Route: 065

REACTIONS (3)
  - Maternal exposure during pregnancy [Unknown]
  - Placenta accreta [Unknown]
  - Uterine atrophy [Unknown]
